FAERS Safety Report 9109772 (Version 1)
Quarter: 2013Q1

REPORT INFORMATION
  Report Type: Spontaneous
  Country: GB (occurrence: GB)
  Receive Date: 20130222
  Receipt Date: 20130222
  Transmission Date: 20140127
  Serious: Yes (Hospitalization)
  Sender: FDA-Public Use
  Company Number: GB-UCBSA-078717

PATIENT
  Sex: Male

DRUGS (2)
  1. KEPPRA [Suspect]
     Indication: CONVULSION
  2. DEXAMETHASONE [Concomitant]
     Indication: INFLAMMATION
     Dosage: 4MG

REACTIONS (2)
  - Convulsion [Unknown]
  - Brain injury [Unknown]
